FAERS Safety Report 8880600 (Version 1)
Quarter: 2012Q4

REPORT INFORMATION
  Report Type: 
  Country: DE (occurrence: DE)
  Receive Date: 20121031
  Receipt Date: 20121031
  Transmission Date: 20130627
  Serious: No
  Sender: FDA-Public Use
  Company Number: DE-UCBSA-069596

PATIENT
  Sex: Female

DRUGS (1)
  1. KEPPRA [Suspect]
     Dosage: UNKNOWN DOSE
     Route: 064

REACTIONS (2)
  - Chromaturia [Unknown]
  - Foetal exposure during pregnancy [Recovered/Resolved]
